FAERS Safety Report 5470349-2 (Version None)
Quarter: 2007Q3

REPORT INFORMATION
  Report Type: 
  Country: None (occurrence: None)
  Receive Date: 20070925
  Receipt Date: 20070903
  Transmission Date: 20080115
  Serious: Yes (Other)
  Sender: FDA-Public Use
  Company Number: JPKYO-S-20070041

PATIENT
  Sex: Female

DRUGS (3)
  1. NAVELBINE [Suspect]
     Indication: NON-SMALL CELL LUNG CANCER
     Dosage: 25 MG IV
     Route: 042
     Dates: start: 20070206, end: 20070206
  2. NAVELBINE [Suspect]
     Indication: NON-SMALL CELL LUNG CANCER
     Dosage: 10 MG IV
     Route: 042
     Dates: start: 20070418
  3. GEMCITABINE HCL [Concomitant]

REACTIONS (1)
  - RENAL FAILURE ACUTE [None]
